FAERS Safety Report 20121869 (Version 1)
Quarter: 2021Q4

REPORT INFORMATION
  Report Type: Spontaneous
  Country: US (occurrence: US)
  Receive Date: 20211128
  Receipt Date: 20211128
  Transmission Date: 20220303
  Serious: No
  Sender: FDA-Public Use
  Company Number: US-PURDUE-USA-2020-0232655

PATIENT

DRUGS (1)
  1. MORPHINE SULFATE [Suspect]
     Active Substance: MORPHINE SULFATE
     Indication: Product used for unknown indication
     Dosage: UNK
     Route: 048

REACTIONS (8)
  - Somnolence [Unknown]
  - Tremor [Unknown]
  - Restlessness [Unknown]
  - Headache [Unknown]
  - Sleep disorder [Unknown]
  - Muscle spasms [Unknown]
  - Anxiety [Unknown]
  - Depression [Unknown]
